FAERS Safety Report 10238650 (Version 2)
Quarter: 2019Q1

REPORT INFORMATION
  Report Type: Spontaneous
  Country: FR (occurrence: FR)
  Receive Date: 20140616
  Receipt Date: 20190227
  Transmission Date: 20190417
  Serious: Yes (Hospitalization)
  Sender: FDA-Public Use
  Company Number: FR-ROCHE-1415056

PATIENT
  Age: 49 Year
  Sex: Male

DRUGS (6)
  1. DEPAKINE [Suspect]
     Active Substance: VALPROATE SODIUM
     Indication: MANIA
     Route: 048
     Dates: start: 20140430, end: 20140502
  2. ZYPREXA [Suspect]
     Active Substance: OLANZAPINE
     Indication: MANIA
     Route: 048
     Dates: start: 20140430, end: 20140502
  3. TERALITHE [Concomitant]
     Active Substance: LITHIUM CARBONATE
     Indication: MANIA
     Route: 048
     Dates: start: 20140519
  4. RISPERDAL [Concomitant]
     Active Substance: RISPERIDONE
     Indication: MANIA
     Route: 048
     Dates: start: 20140506, end: 20140507
  5. VALIUM [Suspect]
     Active Substance: DIAZEPAM
     Indication: MANIA
     Route: 048
     Dates: start: 20140429
  6. ABILIFY [Concomitant]
     Active Substance: ARIPIPRAZOLE
     Indication: MANIA
     Route: 048
     Dates: start: 20140512, end: 20140516

REACTIONS (2)
  - Leukopenia [Recovered/Resolved]
  - Neutropenia [Recovered/Resolved]

NARRATIVE: CASE EVENT DATE: 20140502
